FAERS Safety Report 7222625-0 (Version None)
Quarter: 2011Q1

REPORT INFORMATION
  Report Type: 
  Country: None (occurrence: None)
  Receive Date: 20110112
  Receipt Date: 20110110
  Transmission Date: 20110831
  Serious: Yes (Death, Hospitalization, Other)
  Sender: FDA-Public Use
  Company Number: BR-ABBOTT-10P-020-0680692-00

PATIENT
  Sex: Female
  Weight: 48 kg

DRUGS (9)
  1. OMEPRAZOLE [Concomitant]
     Indication: GASTRIC DISORDER
     Route: 048
     Dates: start: 20100630
  2. HUMIRA [Suspect]
     Dates: end: 20101012
  3. AZATHIOPRINE [Concomitant]
     Indication: CROHN'S DISEASE
     Route: 048
     Dates: start: 20000101
  4. HUMIRA [Suspect]
     Indication: CROHN'S DISEASE
     Dosage: INDUCTION DOSE
     Route: 058
     Dates: start: 20101004
  5. OMEPRAZOLE [Concomitant]
     Indication: PROPHYLAXIS
  6. CAPTOPRIL [Concomitant]
     Indication: PRODUCT USED FOR UNKNOWN INDICATION
  7. CLEXANE [Concomitant]
     Indication: PRODUCT USED FOR UNKNOWN INDICATION
  8. HYDROCORTISONE [Concomitant]
     Indication: CROHN'S DISEASE
     Route: 042
     Dates: start: 20100730
  9. ONDANSETRON [Concomitant]
     Indication: PRODUCT USED FOR UNKNOWN INDICATION

REACTIONS (18)
  - MULTI-ORGAN FAILURE [None]
  - CONVULSION [None]
  - AGGRESSION [None]
  - PNEUMONIA [None]
  - CONFUSIONAL STATE [None]
  - CHRONIC RESPIRATORY FAILURE [None]
  - COLONIC FISTULA [None]
  - CROHN'S DISEASE [None]
  - SEPTIC SHOCK [None]
  - GENERAL PHYSICAL HEALTH DETERIORATION [None]
  - RENAL FAILURE [None]
  - ABNORMAL BEHAVIOUR [None]
  - INTESTINAL FISTULA [None]
  - CARDIAC ARREST [None]
  - LOSS OF CONSCIOUSNESS [None]
  - TREMOR [None]
  - CYANOSIS [None]
  - ACUTE RESPIRATORY FAILURE [None]
